FAERS Safety Report 20054812 (Version 1)
Quarter: 2021Q4

REPORT INFORMATION
  Report Type: Spontaneous
  Country: US (occurrence: None)
  Receive Date: 20211110
  Receipt Date: 20211110
  Transmission Date: 20220303
  Serious: Yes (Disabling)
  Sender: FDA-Public Use
  Company Number: None

PATIENT
  Age: 22 Year
  Sex: Female
  Weight: 55.35 kg

DRUGS (11)
  1. HERBALS\MITRAGYNINE [Suspect]
     Active Substance: HERBALS\MITRAGYNINE
     Indication: Depression
     Dosage: OTHER QUANTITY : 5 CAPSULE(S);?OTHER FREQUENCY : NOT LISTED;?
     Route: 048
     Dates: start: 20190628, end: 20201227
  2. HERBALS\MITRAGYNINE [Suspect]
     Active Substance: HERBALS\MITRAGYNINE
     Indication: Pain
  3. WELLBUTRIN [Concomitant]
     Active Substance: BUPROPION HYDROCHLORIDE
  4. TRAZODONE [Concomitant]
     Active Substance: TRAZODONE HYDROCHLORIDE
  5. VALIUM [Concomitant]
  6. AMBIEN [Concomitant]
     Active Substance: ZOLPIDEM TARTRATE
  7. ATIVAN [Concomitant]
     Active Substance: LORAZEPAM
  8. MULTIVITAMIN [Concomitant]
  9. PROBIOTICS NOS [Concomitant]
     Active Substance: PROBIOTICS NOS
  10. VITAMIN B12 [Concomitant]
     Active Substance: CYANOCOBALAMIN
  11. FIBER [Concomitant]
     Active Substance: PSYLLIUM HUSK

REACTIONS (18)
  - Vomiting projectile [None]
  - Nausea [None]
  - Anxiety [None]
  - Depression [None]
  - Panic attack [None]
  - Anger [None]
  - Withdrawal syndrome [None]
  - Restlessness [None]
  - Insomnia [None]
  - Malaise [None]
  - Gastrointestinal disorder [None]
  - Hot flush [None]
  - Hyperhidrosis [None]
  - Acne [None]
  - Rash [None]
  - Irritability [None]
  - Constipation [None]
  - Dependence [None]

NARRATIVE: CASE EVENT DATE: 20201226
